FAERS Safety Report 23057493 (Version 1)
Quarter: 2023Q4

REPORT INFORMATION
  Report Type: Spontaneous
  Country: US (occurrence: US)
  Receive Date: 20231012
  Receipt Date: 20231012
  Transmission Date: 20240110
  Serious: Yes (Other)
  Sender: FDA-Public Use
  Company Number: US-OPELLA-2023OHG010552

PATIENT
  Age: 13 Year
  Sex: Female

DRUGS (1)
  1. SALICYLIC ACID [Suspect]
     Active Substance: BENZETHONIUM CHLORIDE\DEXTROMETHORPHAN HYDROBROMIDE\DYCLONINE HYDROCHLORIDE\GUAIFENESIN\SALICYLIC AC
     Indication: Product used for unknown indication
     Route: 065

REACTIONS (4)
  - Hypoaesthesia [Recovered/Resolved]
  - Dizziness [Recovered/Resolved]
  - Suicidal ideation [Recovered/Resolved]
  - Overdose [Recovered/Resolved]
